FAERS Safety Report 5467297-0 (Version None)
Quarter: 2007Q3

REPORT INFORMATION
  Report Type: 
  Country: None (occurrence: None)
  Receive Date: 20070920
  Receipt Date: 20070911
  Transmission Date: 20080115
  Serious: Yes (Life-Threatening, Hospitalization)
  Sender: FDA-Public Use
  Company Number: 2007AL003833

PATIENT
  Age: 73 Year
  Sex: Female

DRUGS (13)
  1. METFORMIN HYDROCHLORIDE [Suspect]
     Dosage: 500 MG; TID; PO
     Route: 048
     Dates: start: 19960119, end: 20070829
  2. ENALAPRIL MALEATE [Concomitant]
  3. AMITRIPTYLINE HCL [Concomitant]
  4. PARACETAMOL [Concomitant]
  5. SIMVASTATIN [Concomitant]
  6. TRAMADOL HCL [Concomitant]
  7. ASPIRIN [Concomitant]
  8. LEVOTHYROXINE SODIUM [Concomitant]
  9. DOXAZOSIN MESYLATE [Concomitant]
  10. QUININE [Concomitant]
  11. ATENOLOL [Concomitant]
  12. TRIMETHOPRIM [Concomitant]
  13. IBUPROFEN [Concomitant]

REACTIONS (4)
  - ELECTROCARDIOGRAM PR PROLONGATION [None]
  - FATIGUE [None]
  - HYPERKALAEMIA [None]
  - METABOLIC ACIDOSIS [None]
